FAERS Safety Report 10501096 (Version 1)
Quarter: 2014Q4

REPORT INFORMATION
  Report Type: Report from Study
  Country: BR (occurrence: BR)
  Receive Date: 20141007
  Receipt Date: 20141007
  Transmission Date: 20150528
  Serious: Yes (Death, Hospitalization, Other)
  Sender: FDA-Public Use
  Company Number: PHHY2014BR128535

PATIENT
  Age: 74 Year
  Sex: Male

DRUGS (2)
  1. SANDOSTATIN LAR DEPOT [Suspect]
     Active Substance: OCTREOTIDE ACETATE
     Indication: OFF LABEL USE
  2. SANDOSTATIN LAR DEPOT [Suspect]
     Active Substance: OCTREOTIDE ACETATE
     Indication: LUNG NEOPLASM MALIGNANT
     Dosage: 30 MG, QMO
     Route: 065

REACTIONS (6)
  - Blood triglycerides increased [Unknown]
  - Blood cholesterol increased [Unknown]
  - Stroke in evolution [Unknown]
  - Pneumonia [Fatal]
  - Diabetes mellitus [Unknown]
  - Sepsis [Fatal]

NARRATIVE: CASE EVENT DATE: 201309
